FAERS Safety Report 6032108-1 (Version None)
Quarter: 2009Q1

REPORT INFORMATION
  Report Type: 
  Country: None (occurrence: None)
  Receive Date: 20090108
  Receipt Date: 20081229
  Transmission Date: 20090719
  Serious: Yes (Death)
  Sender: FDA-Public Use
  Company Number: DE-GENENTECH-274585

PATIENT
  Sex: Male

DRUGS (9)
  1. BEVACIZUMAB [Suspect]
     Indication: BRONCHIAL CARCINOMA
     Dosage: 15 MG/KG, UNK
     Route: 042
     Dates: start: 20081029, end: 20081210
  2. ERLOTINIB [Suspect]
     Indication: BRONCHIAL CARCINOMA
     Dosage: 150 MG, QD
     Route: 048
     Dates: start: 20081029, end: 20081221
  3. VOLTAREN [Concomitant]
     Indication: DRUG USE FOR UNKNOWN INDICATION
     Dosage: UNK
     Dates: start: 20080705, end: 20081020
  4. NEXIUM [Concomitant]
     Indication: DRUG USE FOR UNKNOWN INDICATION
     Dosage: UNK
     Dates: start: 20081017, end: 20081221
  5. METOCLOPRAMIDE HYDROCHLORIDE [Concomitant]
     Indication: DRUG USE FOR UNKNOWN INDICATION
     Dosage: UNK
     Dates: start: 20081017, end: 20081021
  6. DURAGESIC-100 [Concomitant]
     Indication: DRUG USE FOR UNKNOWN INDICATION
     Dosage: UNK
     Dates: start: 20081017, end: 20081221
  7. ENOXAPARIN SODIUM [Concomitant]
     Indication: DRUG USE FOR UNKNOWN INDICATION
     Dosage: UNK
     Dates: start: 20081018, end: 20081030
  8. ASPIRIN [Concomitant]
     Indication: DRUG USE FOR UNKNOWN INDICATION
     Dosage: UNK
     Dates: start: 20080705, end: 20081221
  9. SYMBICORT [Concomitant]
     Indication: DRUG USE FOR UNKNOWN INDICATION
     Dosage: UNK
     Dates: start: 20080705, end: 20081221

REACTIONS (1)
  - PULMONARY HAEMORRHAGE [None]
